FAERS Safety Report 18787901 (Version 1)
Quarter: 2021Q1

REPORT INFORMATION
  Report Type: Spontaneous
  Country: US (occurrence: US)
  Receive Date: 20210125
  Receipt Date: 20210125
  Transmission Date: 20210419
  Serious: No
  Sender: FDA-Public Use
  Company Number: US-ROCHE-2684474

PATIENT
  Sex: Male
  Weight: 69.46 kg

DRUGS (6)
  1. CYTOXAN [Concomitant]
     Active Substance: CYCLOPHOSPHAMIDE
     Indication: AUTOIMMUNE HAEMOLYTIC ANAEMIA
  2. RITUXAN [Suspect]
     Active Substance: RITUXIMAB
     Indication: AUTOIMMUNE HAEMOLYTIC ANAEMIA
     Dosage: GIVEN FOR 4 DOSES
     Route: 041
     Dates: start: 201612, end: 201612
  3. RITUXAN [Suspect]
     Active Substance: RITUXIMAB
     Indication: COLD TYPE HAEMOLYTIC ANAEMIA
  4. PROCRIT [Concomitant]
     Active Substance: ERYTHROPOIETIN
     Indication: COLD TYPE HAEMOLYTIC ANAEMIA
  5. PROCRIT [Concomitant]
     Active Substance: ERYTHROPOIETIN
     Indication: AUTOIMMUNE HAEMOLYTIC ANAEMIA
  6. CYTOXAN [Concomitant]
     Active Substance: CYCLOPHOSPHAMIDE
     Indication: COLD TYPE HAEMOLYTIC ANAEMIA

REACTIONS (3)
  - Intentional product use issue [Unknown]
  - Off label use [Unknown]
  - No adverse event [Unknown]
